FAERS Safety Report 9518381 (Version 2)
Quarter: 2015Q1

REPORT INFORMATION
  Report Type: Report from Study
  Country: GB (occurrence: GB)
  Receive Date: 20130912
  Receipt Date: 20150311
  Transmission Date: 20150721
  Serious: Yes (Hospitalization)
  Sender: FDA-Public Use
  Company Number: GB-ROCHE-1272073

PATIENT
  Age: 75 Year
  Sex: Female

DRUGS (2)
  1. RITUXIMAB [Suspect]
     Active Substance: RITUXIMAB
     Indication: RHEUMATOID ARTHRITIS
     Route: 042
     Dates: start: 20110628
  2. METHOTREXATE [Concomitant]
     Active Substance: METHOTREXATE
     Route: 065
     Dates: start: 20130404

REACTIONS (7)
  - Dyspnoea [Unknown]
  - Cough [Unknown]
  - Angina pectoris [Unknown]
  - Atrial fibrillation [Unknown]
  - C-reactive protein increased [Unknown]
  - Pleural neoplasm [Unknown]
  - Chest pain [Unknown]

NARRATIVE: CASE EVENT DATE: 20130115
